FAERS Safety Report 14627245 (Version 2)
Quarter: 2018Q1

REPORT INFORMATION
  Report Type: Spontaneous
  Country: US (occurrence: US)
  Receive Date: 20180312
  Receipt Date: 20180319
  Transmission Date: 20180509
  Serious: Yes (Hospitalization, Other)
  Sender: FDA-Public Use
  Company Number: US-PFIZER INC-2018098862

PATIENT
  Age: 56 Year
  Sex: Female

DRUGS (1)
  1. OXALIPLATIN. [Suspect]
     Active Substance: OXALIPLATIN
     Indication: RECTAL ADENOCARCINOMA
     Dosage: UNK (COMPLETED 75% OF HER CHEMOTHERAPY, RECEIVED FOR 23 MONTHS IN THE PAST) (INFUSION)

REACTIONS (2)
  - Haematemesis [Recovered/Resolved]
  - Immune thrombocytopenic purpura [Recovered/Resolved]
